FAERS Safety Report 11728924 (Version 1)
Quarter: 2015Q4

REPORT INFORMATION
  Report Type: Spontaneous
  Country: US (occurrence: None)
  Receive Date: 20151112
  Receipt Date: 20151112
  Transmission Date: 20160304
  Serious: No
  Sender: FDA-Public Use
  Company Number: US-MDT-ADR-2015-02144

PATIENT
  Age: 8 Year
  Sex: Male

DRUGS (2)
  1. ORAL BACLOFEN [Suspect]
     Active Substance: BACLOFEN
     Dosage: 20 MG; TID
  2. LIORESAL [Suspect]
     Active Substance: BACLOFEN
     Indication: MUSCLE SPASTICITY
     Dosage: 1,054.8 MCG/DAY

REACTIONS (6)
  - Moaning [None]
  - Lethargy [None]
  - Needle issue [None]
  - Insomnia [None]
  - Somnolence [None]
  - Product lot number issue [None]
